FAERS Safety Report 7028242-X (Version None)
Quarter: 2010Q4

REPORT INFORMATION
  Report Type: 
  Country: None (occurrence: None)
  Receive Date: 20101001
  Receipt Date: 20101001
  Transmission Date: 20110411
  Serious: Yes (Hospitalization)
  Sender: FDA-Public Use
  Company Number: None

PATIENT
  Age: 79 Year
  Sex: Male
  Weight: 99.8 kg

DRUGS (2)
  1. WARFARIN SODIUM [Suspect]
     Indication: DEEP VEIN THROMBOSIS
     Dosage: 2 MG PM PO
     Route: 048
     Dates: start: 20100818, end: 20100819
  2. ENOXAPARIN SODIUM [Suspect]
     Indication: DEEP VEIN THROMBOSIS
     Dosage: 100 MG BID SQ
     Route: 058
     Dates: start: 20100816, end: 20100819

REACTIONS (1)
  - GASTRIC HAEMORRHAGE [None]
